FAERS Safety Report 9641526 (Version 1)
Quarter: 2013Q4

REPORT INFORMATION
  Report Type: Spontaneous
  Country: CA (occurrence: None)
  Receive Date: 20131021
  Receipt Date: 20131021
  Transmission Date: 20140711
  Serious: Yes (Hospitalization)
  Sender: FDA-Public Use
  Company Number: IPC201310-000395

PATIENT
  Age: 57 Year
  Sex: Male

DRUGS (8)
  1. ATENOLOL [Suspect]
  2. METHYLPHENIDATE [Concomitant]
  3. LAMOTRIGINE [Concomitant]
  4. LEVOTHYROXINE [Concomitant]
  5. CLONAZEPAM [Concomitant]
  6. MIRTAZAPINE [Concomitant]
  7. AMLODIPINE [Concomitant]
  8. LITHIUM [Concomitant]

REACTIONS (6)
  - Hypotension [None]
  - Bradycardia [None]
  - Conduction disorder [None]
  - Renal impairment [None]
  - Depressed level of consciousness [None]
  - Suicide attempt [None]
